FAERS Safety Report 4458210-3 (Version None)
Quarter: 2004Q3

REPORT INFORMATION
  Report Type: 
  Country: None (occurrence: None)
  Receive Date: 20040917
  Receipt Date: 20040319
  Transmission Date: 20050211
  Serious: Yes (Other)
  Sender: FDA-Public Use
  Company Number: US-JNJFOC-20040304990

PATIENT
  Sex: Male
  Weight: 7.8 kg

DRUGS (3)
  1. TOPAMAX [Suspect]
     Indication: CONVULSION
     Dosage: 25 MG, IN 1 D, ORAL
     Route: 048
  2. TOPAMAX [Suspect]
     Indication: INFANTILE SPASMS
     Dosage: 25 MG, IN 1 D, ORAL
     Route: 048
  3. PHENOBARBITAL TAB [Concomitant]

REACTIONS (1)
  - PCO2 DECREASED [None]
